FAERS Safety Report 24645472 (Version 1)
Quarter: 2024Q4

REPORT INFORMATION
  Report Type: Spontaneous
  Country: US (occurrence: US)
  Receive Date: 20241121
  Receipt Date: 20241121
  Transmission Date: 20250115
  Serious: No
  Sender: ALVOGEN
  Company Number: US-ALVOGEN-2024094736

PATIENT
  Sex: Female
  Weight: 36 kg

DRUGS (3)
  1. TERIPARATIDE [Suspect]
     Active Substance: TERIPARATIDE
     Indication: Osteoporosis
     Dosage: 5-6 YEARS AGO FOR A WHOLE YEAR
     Route: 058
  2. TERIPARATIDE [Suspect]
     Active Substance: TERIPARATIDE
     Indication: Osteoporosis
     Route: 058
     Dates: start: 202310
  3. TERIPARATIDE [Suspect]
     Active Substance: TERIPARATIDE
     Indication: Osteoporosis
     Dosage: SEVERAL MONTHS AGO?EXP: UU-MAR-2025
     Route: 058
     Dates: start: 2024, end: 202405

REACTIONS (7)
  - Gait disturbance [Not Recovered/Not Resolved]
  - Coordination abnormal [Unknown]
  - Condition aggravated [Unknown]
  - Neck pain [Not Recovered/Not Resolved]
  - Pain in extremity [Unknown]
  - Muscular weakness [Unknown]
  - Product dose omission issue [Unknown]

NARRATIVE: CASE EVENT DATE: 20240101
